FAERS Safety Report 10521014 (Version 4)
Quarter: 2015Q1

REPORT INFORMATION
  Report Type: Spontaneous
  Country: CA (occurrence: CA)
  Receive Date: 20141016
  Receipt Date: 20150318
  Transmission Date: 20150720
  Serious: Yes (Hospitalization)
  Sender: FDA-Public Use
  Company Number: CA-ROCHE-1475021

PATIENT
  Age: 48 Year
  Sex: Female
  Weight: 76.5 kg

DRUGS (12)
  1. CYCLOSPORIN [Suspect]
     Active Substance: CYCLOSPORINE
     Indication: PRODUCT USED FOR UNKNOWN INDICATION
     Route: 065
  2. MIRTAZAPINE. [Concomitant]
     Active Substance: MIRTAZAPINE
  3. SALBUTAMOL [Concomitant]
     Active Substance: ALBUTEROL
  4. XOLAIR [Suspect]
     Active Substance: OMALIZUMAB
     Indication: CHRONIC SPONTANEOUS URTICARIA
     Route: 058
     Dates: start: 20131209
  5. PREDNISONE. [Concomitant]
     Active Substance: PREDNISONE
  6. BENADRYL [Concomitant]
     Active Substance: DIPHENHYDRAMINE HYDROCHLORIDE
  7. CETIRIZINE [Concomitant]
     Active Substance: CETIRIZINE HYDROCHLORIDE
  8. BROMOCRIPTINE [Suspect]
     Active Substance: BROMOCRIPTINE
     Indication: PRODUCT USED FOR UNKNOWN INDICATION
     Route: 065
  9. XOLAIR [Suspect]
     Active Substance: OMALIZUMAB
     Route: 058
     Dates: start: 20150310
  10. AERIUS (CANADA) [Concomitant]
  11. MYFORTIC [Concomitant]
     Active Substance: MYCOPHENOLATE SODIUM
  12. ALLEGRA [Concomitant]
     Active Substance: FEXOFENADINE HYDROCHLORIDE

REACTIONS (4)
  - Weight decreased [Unknown]
  - Pigmentation disorder [Unknown]
  - Post procedural complication [Recovering/Resolving]
  - Dizziness [Unknown]

NARRATIVE: CASE EVENT DATE: 20131210
